FAERS Safety Report 9240596 (Version 1)
Quarter: 2013Q2

REPORT INFORMATION
  Report Type: Spontaneous
  Country: DK (occurrence: FR)
  Receive Date: 20130418
  Receipt Date: 20130418
  Transmission Date: 20140414
  Serious: Yes (Disabling)
  Sender: FDA-Public Use
  Company Number: FR-FRI-1000044444

PATIENT
  Age: 48 Year
  Sex: Male

DRUGS (5)
  1. ESCITALOPRAM [Suspect]
     Indication: DEPRESSION
     Route: 048
     Dates: start: 201201
  2. INTELENCE [Interacting]
     Indication: HIV INFECTION
     Dosage: 400 MG
     Route: 048
     Dates: start: 2008
  3. NORVIR [Interacting]
     Indication: HIV INFECTION
     Dosage: 200 MG
     Route: 048
     Dates: start: 2008
  4. ISENTRESS [Concomitant]
     Dosage: 400 MG
  5. PREZISTA [Concomitant]
     Dosage: 1200 MG
     Dates: start: 2008

REACTIONS (4)
  - Blood creatine phosphokinase increased [Not Recovered/Not Resolved]
  - Myalgia [Not Recovered/Not Resolved]
  - Neuropathy peripheral [Not Recovered/Not Resolved]
  - Drug interaction [Not Recovered/Not Resolved]
